FAERS Safety Report 15294043 (Version 1)
Quarter: 2018Q3

REPORT INFORMATION
  Report Type: Spontaneous
  Country: US (occurrence: US)
  Receive Date: 20180820
  Receipt Date: 20180820
  Transmission Date: 20181010
  Serious: Yes (Death, Hospitalization, Other)
  Sender: FDA-Public Use
  Company Number: US-AUROBINDO-AUR-APL-2018-041923

PATIENT
  Age: 4 Decade
  Sex: Male

DRUGS (1)
  1. OXYCODONE [Suspect]
     Active Substance: OXYCODONE
     Indication: PAIN
     Dosage: 5 MILLIGRAM, EVERY 6 HOURS FOR 7 DAYS
     Route: 065

REACTIONS (4)
  - Pulmonary oedema [Unknown]
  - Cardio-respiratory arrest [Fatal]
  - Overdose [Unknown]
  - Drug abuse [Unknown]
